FAERS Safety Report 24680197 (Version 1)
Quarter: 2024Q4

REPORT INFORMATION
  Report Type: Spontaneous
  Country: US (occurrence: US)
  Receive Date: 20241129
  Receipt Date: 20241129
  Transmission Date: 20250115
  Serious: Yes (Other)
  Sender: BRACCO
  Company Number: US-BRACCO-2024US02457

PATIENT
  Age: 64 Year
  Sex: Male

DRUGS (6)
  1. LUMASON [Suspect]
     Active Substance: SULFUR HEXAFLUORIDE
     Indication: Echocardiogram
     Dosage: 0.5 ML, SINGLE
     Route: 042
     Dates: start: 20240416, end: 20240416
  2. LUMASON [Suspect]
     Active Substance: SULFUR HEXAFLUORIDE
     Indication: Echocardiogram
     Dosage: 0.5 ML, SINGLE
     Route: 042
     Dates: start: 20240416, end: 20240416
  3. LUMASON [Suspect]
     Active Substance: SULFUR HEXAFLUORIDE
     Indication: Echocardiogram
     Dosage: 0.5 ML, SINGLE
     Route: 042
     Dates: start: 20240416, end: 20240416
  4. LUMASON [Suspect]
     Active Substance: SULFUR HEXAFLUORIDE
     Dosage: 0.5 ML, SINGLE
     Route: 042
     Dates: start: 20240416, end: 20240416
  5. LUMASON [Suspect]
     Active Substance: SULFUR HEXAFLUORIDE
     Dosage: 0.5 ML, SINGLE
     Route: 042
     Dates: start: 20240416, end: 20240416
  6. LUMASON [Suspect]
     Active Substance: SULFUR HEXAFLUORIDE
     Dosage: 0.5 ML, SINGLE
     Route: 042
     Dates: start: 20240416, end: 20240416

REACTIONS (7)
  - Blood pressure increased [Recovered/Resolved]
  - Headache [Recovered/Resolved]
  - Nausea [Recovered/Resolved]
  - Dyspnoea [Recovered/Resolved]
  - Feeling abnormal [Recovered/Resolved]
  - Anxiety [Recovered/Resolved]
  - Restlessness [Recovered/Resolved]

NARRATIVE: CASE EVENT DATE: 20240416
